FAERS Safety Report 8221840-7 (Version None)
Quarter: 2012Q1

REPORT INFORMATION
  Report Type: 
  Country: None (occurrence: None)
  Receive Date: 20120315
  Receipt Date: 20120305
  Transmission Date: 20120608
  Serious: Yes (Other)
  Sender: FDA-Public Use
  Company Number: 2012SP001756

PATIENT
  Age: 52 Year
  Sex: Female

DRUGS (5)
  1. COPEGUS [Suspect]
     Indication: PRODUCT USED FOR UNKNOWN INDICATION
     Dosage: 1000 MG;QD;PO
     Route: 048
     Dates: start: 20111118
  2. ZORFAN ODT [Concomitant]
  3. PEGASYS [Suspect]
     Indication: PRODUCT USED FOR UNKNOWN INDICATION
     Dosage: 180 MCG;QW;SC
     Route: 058
     Dates: start: 20111118
  4. VICTRELIS [Suspect]
     Indication: HEPATITIS C
     Dosage: 800 MG;TID;PO
     Route: 048
     Dates: start: 20111212
  5. AMITRIP [Concomitant]

REACTIONS (7)
  - COUGH [None]
  - FATIGUE [None]
  - RETCHING [None]
  - PNEUMONIA [None]
  - DIARRHOEA [None]
  - PYREXIA [None]
  - CHEST DISCOMFORT [None]
